FAERS Safety Report 23247266 (Version 4)
Quarter: 2023Q4

REPORT INFORMATION
  Report Type: Report from Study
  Country: ES (occurrence: ES)
  Receive Date: 20231130
  Receipt Date: 20231207
  Transmission Date: 20240110
  Serious: Yes (Life-Threatening)
  Sender: FDA-Public Use
  Company Number: ES-AMGEN-ESPCT2023213529

PATIENT
  Age: 9 Year
  Sex: Male

DRUGS (7)
  1. CARFILZOMIB [Suspect]
     Active Substance: CARFILZOMIB
     Indication: Acute lymphocytic leukaemia
     Dosage: 61.6 MILLIGRAM
     Route: 042
     Dates: start: 20231116
  2. DAUNORUBICIN [Suspect]
     Active Substance: DAUNORUBICIN
     Indication: Acute lymphocytic leukaemia
     Dosage: 66 MILLIGRAM
     Route: 065
     Dates: start: 20231117, end: 20231117
  3. ACYCLOVIR [Concomitant]
     Active Substance: ACYCLOVIR
     Dosage: 550 MILLIGRAM
     Route: 042
  4. METHOTREXATE [Concomitant]
     Active Substance: METHOTREXATE
     Dosage: UNK
     Dates: start: 20231116, end: 20231116
  5. VINCRISTINE [Concomitant]
     Active Substance: VINCRISTINE
     Dosage: 1.65 MILLIGRAM
     Dates: start: 20231116
  6. NOREPINEPHRINE [Concomitant]
     Active Substance: NOREPINEPHRINE
     Dosage: 0.03 MILLIGRAM/KILOGRAM/0.03MCG/KG/H
  7. AMBISOME [Concomitant]
     Active Substance: AMPHOTERICIN B
     Dosage: 95 MILLIGRAM
     Route: 042
     Dates: start: 20231121, end: 20231127

REACTIONS (1)
  - Tachycardia [Recovered/Resolved]

NARRATIVE: CASE EVENT DATE: 20231128
